FAERS Safety Report 4343673-4 (Version None)
Quarter: 2004Q2

REPORT INFORMATION
  Report Type: 
  Country: None (occurrence: None)
  Receive Date: 20040421
  Receipt Date: 20040421
  Transmission Date: 20050107
  Serious: No
  Sender: FDA-Public Use
  Company Number: None

PATIENT
  Age: 7 Year
  Sex: Female
  Weight: 50 kg

DRUGS (1)
  1. LUPRON DEPOT-PED [Suspect]
     Dosage: 15 MG IM Q 28 D
     Route: 030
     Dates: start: 20040101, end: 20040301

REACTIONS (1)
  - INJECTION SITE ABSCESS STERILE [None]
